FAERS Safety Report 6498367-6 (Version None)
Quarter: 2009Q4

REPORT INFORMATION
  Report Type: 
  Country: None (occurrence: None)
  Receive Date: 20091215
  Receipt Date: 20091207
  Transmission Date: 20100525
  Serious: Yes (Other)
  Sender: FDA-Public Use
  Company Number: US-WYE-H12505209

PATIENT
  Age: 63 Year
  Sex: Female

DRUGS (1)
  1. TEMSIROLIMUS [Suspect]
     Indication: ENDOMETRIAL CANCER
     Route: 042
     Dates: start: 20090626, end: 20090731

REACTIONS (3)
  - CARBON MONOXIDE DIFFUSING CAPACITY DECREASED [None]
  - HYPERSENSITIVITY [None]
  - INTERSTITIAL LUNG DISEASE [None]
